FAERS Safety Report 7686362-0 (Version None)
Quarter: 2011Q3

REPORT INFORMATION
  Report Type: 
  Country: None (occurrence: None)
  Receive Date: 20110816
  Receipt Date: 20110809
  Transmission Date: 20111222
  Serious: Yes (Life-Threatening, Hospitalization)
  Sender: FDA-Public Use
  Company Number: FR-GLAXOSMITHKLINE-B0738089A

PATIENT
  Sex: Male

DRUGS (17)
  1. XANAX [Concomitant]
     Dosage: 3UNIT PER DAY
     Route: 065
     Dates: end: 20110720
  2. GAVISCON [Concomitant]
     Dosage: 3UNIT PER DAY
     Route: 065
  3. ATORVASTATIN CALCIUM [Concomitant]
     Dosage: 1UNIT PER DAY
     Route: 065
  4. PREDNISOLONE [Concomitant]
     Indication: CHRONIC OBSTRUCTIVE PULMONARY DISEASE
     Route: 065
  5. VALIUM [Concomitant]
     Route: 065
     Dates: start: 20110720
  6. NEXIUM [Concomitant]
     Dosage: 40MG PER DAY
     Route: 065
  7. LANSOYL [Concomitant]
     Dosage: 1UNIT THREE TIMES PER DAY
     Route: 065
  8. ACETAMINOPHEN AND TRAMADOL HCL [Suspect]
     Indication: PRODUCT USED FOR UNKNOWN INDICATION
     Route: 048
     Dates: start: 20110713, end: 20110719
  9. PAROXETINE HCL [Suspect]
     Indication: PRODUCT USED FOR UNKNOWN INDICATION
     Dosage: 20MG PER DAY
     Route: 048
     Dates: start: 20110713, end: 20110713
  10. OXYGEN THERAPY [Concomitant]
     Route: 055
  11. ISOPTIN [Concomitant]
     Dosage: 120MG PER DAY
     Route: 065
  12. ASPIRIN [Concomitant]
     Dosage: 75MG PER DAY
     Route: 065
  13. PAROXETINE HCL [Suspect]
     Indication: PRODUCT USED FOR UNKNOWN INDICATION
     Dosage: 1UNIT PER DAY
     Route: 048
     Dates: start: 20110714, end: 20110725
  14. TRAMADOL HCL [Suspect]
     Indication: PRODUCT USED FOR UNKNOWN INDICATION
     Route: 048
     Dates: start: 20110713, end: 20110713
  15. SERETIDE [Concomitant]
     Dosage: 1000MCG PER DAY
     Route: 055
  16. TRAMADOL HCL [Suspect]
     Indication: PRODUCT USED FOR UNKNOWN INDICATION
     Dosage: 100MG TWICE PER DAY
     Route: 048
     Dates: start: 20110714, end: 20110719
  17. HALDOL [Concomitant]
     Route: 065
     Dates: start: 20110720

REACTIONS (18)
  - SEROTONIN SYNDROME [None]
  - TACHYCARDIA [None]
  - HAEMODYNAMIC INSTABILITY [None]
  - ALTERED STATE OF CONSCIOUSNESS [None]
  - HALLUCINATION [None]
  - COMA [None]
  - PYREXIA [None]
  - DISTURBANCE IN ATTENTION [None]
  - OVERDOSE [None]
  - ENCEPHALOPATHY [None]
  - AGITATION [None]
  - MUSCLE RIGIDITY [None]
  - HYPOTENSION [None]
  - TONIC CLONIC MOVEMENTS [None]
  - INCOHERENT [None]
  - HYPERTONIA [None]
  - DRUG INTERACTION [None]
  - AUTONOMIC NERVOUS SYSTEM IMBALANCE [None]
